FAERS Safety Report 8450034-5 (Version None)
Quarter: 2012Q2

REPORT INFORMATION
  Report Type: 
  Country: None (occurrence: None)
  Receive Date: 20120620
  Receipt Date: 20120608
  Transmission Date: 20120825
  Serious: Yes (Other)
  Sender: FDA-Public Use
  Company Number: FR-JNJFOC-20120608391

PATIENT
  Age: 28 Year
  Sex: Male

DRUGS (1)
  1. ACETAMINOPHEN AND TRAMADOL HCL [Suspect]
     Indication: PRODUCT USED FOR UNKNOWN INDICATION
     Route: 048
     Dates: start: 20120604

REACTIONS (3)
  - CONVULSION [None]
  - HYPERHIDROSIS [None]
  - ERECTILE DYSFUNCTION [None]
